FAERS Safety Report 16369380 (Version 1)
Quarter: 2019Q2

REPORT INFORMATION
  Report Type: Spontaneous
  Country: US (occurrence: US)
  Receive Date: 20190529
  Receipt Date: 20190529
  Transmission Date: 20190711
  Serious: No
  Sender: FDA-Public Use
  Company Number: US-ASTRAZENECA-2019SE68757

PATIENT
  Age: 59 Year
  Sex: Male
  Weight: 108 kg

DRUGS (1)
  1. BYDUREON [Suspect]
     Active Substance: EXENATIDE
     Indication: TYPE 2 DIABETES MELLITUS
     Route: 058
     Dates: start: 2017

REACTIONS (6)
  - Asthenia [Recovering/Resolving]
  - Device issue [Unknown]
  - Intentional device misuse [Recovered/Resolved]
  - Incorrect dose administered [Unknown]
  - Weight decreased [Unknown]
  - Wrong technique in device usage process [Recovered/Resolved]

NARRATIVE: CASE EVENT DATE: 2017
